FAERS Safety Report 23558759 (Version 2)
Quarter: 2024Q1

REPORT INFORMATION
  Report Type: Spontaneous
  Country: AU (occurrence: AU)
  Receive Date: 20240223
  Receipt Date: 20240304
  Transmission Date: 20240410
  Serious: Yes (Hospitalization, Other)
  Sender: FDA-Public Use
  Company Number: AU-BRISTOL-MYERS SQUIBB COMPANY-2024-027410

PATIENT
  Age: 61 Year
  Sex: Female

DRUGS (15)
  1. CAMZYOS [Suspect]
     Active Substance: MAVACAMTEN
     Indication: Hypertrophic cardiomyopathy
     Route: 048
     Dates: start: 20240117
  2. AMIODARONE [Concomitant]
     Active Substance: AMIODARONE
     Indication: Product used for unknown indication
  3. VERAPAMIL [Concomitant]
     Active Substance: VERAPAMIL HYDROCHLORIDE
     Indication: Product used for unknown indication
  4. DIGOXIN [Concomitant]
     Active Substance: DIGOXIN
     Indication: Product used for unknown indication
  5. APIXABAN [Concomitant]
     Active Substance: APIXABAN
     Indication: Product used for unknown indication
  6. SPIRONOLACTONE [Concomitant]
     Active Substance: SPIRONOLACTONE
     Indication: Product used for unknown indication
  7. FUROSEMIDE [Concomitant]
     Active Substance: FUROSEMIDE
     Indication: Product used for unknown indication
  8. PRAVASTATIN [Concomitant]
     Active Substance: PRAVASTATIN
     Indication: Product used for unknown indication
  9. BUDESONIDE\FORMOTEROL [Concomitant]
     Active Substance: BUDESONIDE\FORMOTEROL
     Indication: Product used for unknown indication
     Dosage: 200MCG/6MCG 2 PUFFS 2X DAILY
  10. TIOTROPIUM [Concomitant]
     Active Substance: TIOTROPIUM
     Indication: Product used for unknown indication
     Dosage: 2 PUFFS MANE
  11. MONTELUKAST [Concomitant]
     Active Substance: MONTELUKAST SODIUM
     Indication: Product used for unknown indication
  12. DUPILUMAB [Concomitant]
     Active Substance: DUPILUMAB
     Indication: Product used for unknown indication
  13. ALBUTEROL [Concomitant]
     Active Substance: ALBUTEROL
     Indication: Product used for unknown indication
     Dosage: PRN
  14. ESOMEPRAZOLE [Concomitant]
     Active Substance: ESOMEPRAZOLE
     Indication: Product used for unknown indication
  15. ESTRADIOL [Concomitant]
     Active Substance: ESTRADIOL
     Indication: Product used for unknown indication

REACTIONS (10)
  - Oedema peripheral [Unknown]
  - Hypervolaemia [Unknown]
  - Ejection fraction decreased [Recovering/Resolving]
  - Productive cough [Unknown]
  - Pyrexia [Unknown]
  - Dyspnoea exertional [Unknown]
  - Orthopnoea [Unknown]
  - Loss of consciousness [Unknown]
  - Atrial fibrillation [Unknown]
  - N-terminal prohormone brain natriuretic peptide increased [Unknown]
